FAERS Safety Report 26156528 (Version 1)
Quarter: 2025Q4

REPORT INFORMATION
  Report Type: Report from Study
  Country: CN (occurrence: CN)
  Receive Date: 20251215
  Receipt Date: 20251215
  Transmission Date: 20260117
  Serious: Yes (Other)
  Sender: ROCHE
  Company Number: CN-ROCHE-10000456409

PATIENT

DRUGS (5)
  1. BEVACIZUMAB [Suspect]
     Active Substance: BEVACIZUMAB
     Indication: Hepatocellular carcinoma
  2. SINTILIMAB [Suspect]
     Active Substance: SINTILIMAB
     Indication: Hepatocellular carcinoma
  3. OXALIPLATIN [Suspect]
     Active Substance: OXALIPLATIN
     Indication: Hepatocellular carcinoma
     Dosage: 100 ~ 150 MG?THE BOLUS TIME OF EACH DRUG WAS NOT LESS THAN 30 MIN
     Route: 040
  4. RALTITREXED [Suspect]
     Active Substance: RALTITREXED
     Indication: Hepatocellular carcinoma
     Dosage: 2 ~ 4 MG?THE BOLUS TIME OF EACH DRUG WAS NOT LESS THAN 30 MIN
     Route: 040
  5. EPIRUBICIN [Suspect]
     Active Substance: EPIRUBICIN
     Indication: Hepatocellular carcinoma
     Dosage: MIXED WITH IODINATED OIL 10 ~ 20ML WAS PREPARED INTO IODINATED OIL EMULSION FOR CHEMOEMBOLIZATION

REACTIONS (14)
  - Hypothyroidism [Unknown]
  - Hyperthyroidism [Unknown]
  - Rash [Unknown]
  - Skin exfoliation [Unknown]
  - Gastrointestinal haemorrhage [Unknown]
  - Haemoptysis [Unknown]
  - Nausea [Unknown]
  - Vomiting [Unknown]
  - Diarrhoea [Unknown]
  - Proteinuria [Unknown]
  - Pneumonia [Unknown]
  - Pain [Unknown]
  - Asthenia [Unknown]
  - Muscular weakness [Unknown]
